FAERS Safety Report 4972637-2 (Version None)
Quarter: 2006Q1

REPORT INFORMATION
  Report Type: 
  Country: None (occurrence: None)
  Receive Date: 20060216
  Receipt Date: 20050120
  Transmission Date: 20060701
  Serious: Yes (Hospitalization)
  Sender: FDA-Public Use
  Company Number: 2005IM000022

PATIENT
  Age: 82 Year
  Sex: Male
  Weight: 66.2252 kg

DRUGS (12)
  1. ACTIMMUNE [Suspect]
     Indication: IDIOPATHIC PULMONARY FIBROSIS
     Dosage: 100 UG, SUBCUTANEOUS
     Route: 058
     Dates: start: 20050107
  2. DIGOXIN [Concomitant]
  3. LEVOXYL [Concomitant]
  4. ZOLOFT [Concomitant]
  5. PREDNISONE TAB [Concomitant]
  6. GUAIFENESIN [Concomitant]
  7. ADVAIR DISKUS 100/50 [Concomitant]
  8. MULTIVITAMIN [Concomitant]
  9. ASPIRIN [Concomitant]
  10. OXYGEN [Concomitant]
  11. STOOL SOFTENER [Concomitant]
  12. ACETAMINOPHEN [Concomitant]

REACTIONS (1)
  - CONVULSION [None]
